FAERS Safety Report 5365789-6 (Version None)
Quarter: 2007Q2

REPORT INFORMATION
  Report Type: 
  Country: None (occurrence: None)
  Receive Date: 20070613
  Receipt Date: 20070530
  Transmission Date: 20071010
  Serious: Yes (Hospitalization)
  Sender: FDA-Public Use
  Company Number: WSDF_00644

PATIENT
  Age: 78 Year
  Sex: Female
  Weight: 81.7382 kg

DRUGS (8)
  1. WINRHO SDF [Suspect]
     Indication: IDIOPATHIC THROMBOCYTOPENIC PURPURA
     Dosage: 74.92 UG/KG ONCE;
     Dates: start: 20070420, end: 20070420
  2. REGULAR INSULIN [Concomitant]
  3. PROCRIT [Concomitant]
  4. NEURONTIN [Concomitant]
  5. FERROUS SULFATE [Concomitant]
  6. PRAVACHOL [Concomitant]
  7. LACTINEX [Concomitant]
  8. PREDNISONE TAB [Concomitant]

REACTIONS (7)
  - BACTERIAL SEPSIS [None]
  - ENDOCARDITIS [None]
  - ESCHERICHIA INFECTION [None]
  - HAEMOGLOBINURIA [None]
  - HAEMOLYSIS [None]
  - HYPOTENSION [None]
  - MITRAL VALVE DISEASE [None]
